FAERS Safety Report 22079885 (Version 1)
Quarter: 2023Q1

REPORT INFORMATION
  Report Type: Spontaneous
  Country: US (occurrence: None)
  Receive Date: 20230309
  Receipt Date: 20230309
  Transmission Date: 20230418
  Serious: Yes (Life-Threatening, Other)
  Sender: FDA-Public Use
  Company Number: None

PATIENT
  Age: 35 Year
  Sex: Female
  Weight: 87.75 kg

DRUGS (1)
  1. BUPRENORPHINE AND NALOXONE SUBLINGUAL [Suspect]
     Active Substance: BUPRENORPHINE HYDROCHLORIDE\NALOXONE HYDROCHLORIDE
     Indication: Drug dependence
     Dosage: OTHER QUANTITY : 3 90;?FREQUENCY : 3 TIMES A DAY;?
     Route: 048

REACTIONS (13)
  - Product substitution issue [None]
  - Drug ineffective [None]
  - Withdrawal syndrome [None]
  - Nausea [None]
  - Chills [None]
  - Feeling of body temperature change [None]
  - Tremor [None]
  - Muscle spasms [None]
  - Hypertension [None]
  - Dizziness [None]
  - Rash [None]
  - Infection [None]
  - Inability to afford medication [None]

NARRATIVE: CASE EVENT DATE: 20200928
